FAERS Safety Report 18099907 (Version 1)
Quarter: 2020Q3

REPORT INFORMATION
  Report Type: Spontaneous
  Country: CA (occurrence: CA)
  Receive Date: 20200731
  Receipt Date: 20200731
  Transmission Date: 20201103
  Serious: Yes (Hospitalization)
  Sender: FDA-Public Use
  Company Number: CA-HLS-202000923

PATIENT
  Age: 51 Year
  Sex: Female
  Weight: 53 kg

DRUGS (3)
  1. MIRTAZAPINE. [Concomitant]
     Active Substance: MIRTAZAPINE
     Route: 065
  2. CLOZARIL [Suspect]
     Active Substance: CLOZAPINE
     Indication: SCHIZOPHRENIA
     Dosage: 300.0 MILLIGRAM
     Route: 048
  3. PANTOPRAZOLE [Concomitant]
     Active Substance: PANTOPRAZOLE
     Dosage: NOT SPECIFIED
     Route: 065

REACTIONS (18)
  - Cough [Recovering/Resolving]
  - C-reactive protein increased [Recovering/Resolving]
  - Polyserositis [Recovering/Resolving]
  - Asthenia [Recovering/Resolving]
  - Leukocytosis [Recovering/Resolving]
  - Pneumonia [Recovering/Resolving]
  - Haematemesis [Recovering/Resolving]
  - Ventricular remodelling [Recovering/Resolving]
  - Lung hyperinflation [Recovering/Resolving]
  - White blood cell count increased [Recovering/Resolving]
  - Atelectasis [Recovering/Resolving]
  - Chest discomfort [Recovering/Resolving]
  - Pyrexia [Recovering/Resolving]
  - Breath sounds abnormal [Recovering/Resolving]
  - Chest pain [Recovering/Resolving]
  - Oropharyngeal pain [Recovering/Resolving]
  - Pleural effusion [Recovering/Resolving]
  - Tachycardia [Recovering/Resolving]
